FAERS Safety Report 21250345 (Version 1)
Quarter: 2022Q3

REPORT INFORMATION
  Report Type: Spontaneous
  Country: US (occurrence: None)
  Receive Date: 20220823
  Receipt Date: 20220823
  Transmission Date: 20221027
  Serious: Yes (Death)
  Sender: FDA-Public Use
  Company Number: None

PATIENT
  Age: 63 Year
  Sex: Female

DRUGS (1)
  1. ENTECAVIR [Suspect]
     Active Substance: ENTECAVIR
     Dosage: 0.5MG DAILY ORAL
     Route: 048
     Dates: start: 20220326

REACTIONS (1)
  - Death [None]

NARRATIVE: CASE EVENT DATE: 20220823
